FAERS Safety Report 5630272-7 (Version None)
Quarter: 2008Q1

REPORT INFORMATION
  Report Type: 
  Country: None (occurrence: None)
  Receive Date: 20080219
  Receipt Date: 20080111
  Transmission Date: 20080703
  Serious: No
  Sender: FDA-Public Use
  Company Number: US-BAYER-200810857NA

PATIENT
  Sex: Male

DRUGS (4)
  1. LEVITRA [Suspect]
     Indication: ERECTILE DYSFUNCTION
     Dosage: AS USED: 20 MG  UNIT DOSE: 20 MG
     Route: 048
     Dates: start: 20050101
  2. LEVITRA [Suspect]
     Dosage: AS USED: 10 MG  UNIT DOSE: 20 MG
     Route: 048
  3. TOPAMAX [Concomitant]
  4. VYTORIN [Concomitant]

REACTIONS (1)
  - ERECTILE DYSFUNCTION [None]
